FAERS Safety Report 15187191 (Version 1)
Quarter: 2018Q3

REPORT INFORMATION
  Report Type: Report from Study
  Country: US (occurrence: US)
  Receive Date: 20180723
  Receipt Date: 20180723
  Transmission Date: 20181010
  Serious: No
  Sender: FDA-Public Use
  Company Number: US-EXELIXIS-CABO-18012253

PATIENT
  Sex: Male

DRUGS (11)
  1. CLINDAMYCIN HCL [Concomitant]
     Active Substance: CLINDAMYCIN HYDROCHLORIDE
  2. ANUCORT?HC [Concomitant]
     Active Substance: HYDROCORTISONE ACETATE
  3. NORCO [Concomitant]
     Active Substance: ACETAMINOPHEN\HYDROCODONE BITARTRATE
  4. CABOMETYX [Suspect]
     Active Substance: CABOZANTINIB S-MALATE
     Indication: RENAL CANCER
     Dosage: 40 MG, QD
     Route: 048
  5. ATENOLOL. [Concomitant]
     Active Substance: ATENOLOL
  6. ELIQUIS [Concomitant]
     Active Substance: APIXABAN
  7. TESTOSTERONE. [Concomitant]
     Active Substance: TESTOSTERONE
  8. METOPROLOL. [Concomitant]
     Active Substance: METOPROLOL
  9. ALLOPURINOL. [Concomitant]
     Active Substance: ALLOPURINOL
  10. LOSARTAN. [Concomitant]
     Active Substance: LOSARTAN
  11. VITAMIN D [Concomitant]
     Active Substance: CHOLECALCIFEROL

REACTIONS (1)
  - Epistaxis [Unknown]
